FAERS Safety Report 5287707-1 (Version None)
Quarter: 2007Q2

REPORT INFORMATION
  Report Type: 
  Country: None (occurrence: None)
  Receive Date: 20070405
  Receipt Date: 20070328
  Transmission Date: 20071010
  Serious: Yes (Other)
  Sender: FDA-Public Use
  Company Number: HQWYE928130JAN07

PATIENT
  Sex: Female

DRUGS (5)
  1. EFFEXOR XR [Suspect]
     Indication: POSTPARTUM DEPRESSION
     Route: 048
     Dates: start: 20000101
  2. IRON [Concomitant]
     Dosage: ^TABLET DAILY^
  3. VITAMINS NOS [Concomitant]
     Indication: PRENATAL CARE
     Dosage: ^TABLET DAILY^
  4. NEXIUM [Concomitant]
     Indication: GASTROOESOPHAGEAL REFLUX DISEASE
     Dosage: 40 MG 2 TIMES/DAY ^ONLY TOOK WHEN NEEDED^
  5. RANITIDINE [Concomitant]
     Indication: GASTROOESOPHAGEAL REFLUX DISEASE
     Dosage: 300 MG ONE TIME/DAILY ^ONLY TOOK WHEN NEEDED^

REACTIONS (6)
  - BLOOD PRESSURE DECREASED [None]
  - CERVIX DYSTOCIA [None]
  - DRUG DEPENDENCE [None]
  - DRUG EXPOSURE DURING PREGNANCY [None]
  - DRUG WITHDRAWAL SYNDROME [None]
  - PLACENTAL DISORDER [None]
